FAERS Safety Report 9353758 (Version 1)
Quarter: 2013Q2

REPORT INFORMATION
  Report Type: Spontaneous
  Country: JP (occurrence: None)
  Receive Date: 20130612
  Receipt Date: 20130612
  Transmission Date: 20140414
  Serious: Yes (Hospitalization)
  Sender: FDA-Public Use
  Company Number: 2013S1001039

PATIENT
  Age: 77 Year
  Sex: Male
  Weight: 60.2 kg

DRUGS (12)
  1. LIVALO [Suspect]
     Indication: PERIPHERAL ARTERIAL OCCLUSIVE DISEASE
     Route: 048
     Dates: start: 20130418
  2. PITAVASTATIN CALCIUM [Suspect]
     Indication: PERIPHERAL ARTERIAL OCCLUSIVE DISEASE
     Route: 048
     Dates: start: 20121108, end: 20130418
  3. LIVALO (PITAVASTATIN) TABLETS 2 MG [Suspect]
     Indication: HYPERLIPIDAEMIA
     Route: 048
     Dates: start: 20110313
  4. BUFFERIN 81MG [Concomitant]
  5. WARFARIN [Concomitant]
  6. AMARYL [Concomitant]
  7. POLYFUL [Concomitant]
  8. IRRICOLON M [Concomitant]
  9. EQUA [Concomitant]
  10. ADALAT CR [Concomitant]
  11. HARNAL D [Concomitant]
  12. ZETIA [Concomitant]

REACTIONS (1)
  - Urinary tract infection [None]
